FAERS Safety Report 7785628-3 (Version None)
Quarter: 2011Q3

REPORT INFORMATION
  Report Type: 
  Country: None (occurrence: None)
  Receive Date: 20110929
  Receipt Date: 20110916
  Transmission Date: 20111222
  Serious: No
  Sender: FDA-Public Use
  Company Number: US-JNJFOC-20110907521

PATIENT
  Sex: Male
  Weight: 56.7 kg

DRUGS (4)
  1. INVEGA [Suspect]
     Indication: SCHIZOPHRENIA, PARANOID TYPE
     Route: 048
     Dates: start: 20110815, end: 20110815
  2. LUNESTA [Concomitant]
     Indication: PRODUCT USED FOR UNKNOWN INDICATION
     Route: 048
  3. INVEGA SUSTENNA [Suspect]
     Indication: SCHIZOPHRENIA, PARANOID TYPE
     Route: 030
     Dates: start: 20110816
  4. INVEGA SUSTENNA [Suspect]
     Route: 030
     Dates: start: 20110815, end: 20110815

REACTIONS (5)
  - ARRHYTHMIA [None]
  - TACHYCARDIA [None]
  - PALPITATIONS [None]
  - INJECTION SITE REACTION [None]
  - MUSCULOSKELETAL STIFFNESS [None]
